FAERS Safety Report 13753240 (Version 1)
Quarter: 2017Q3

REPORT INFORMATION
  Report Type: Report from Study
  Country: None (occurrence: US)
  Receive Date: 20170714
  Receipt Date: 20170714
  Transmission Date: 20171127
  Serious: No
  Sender: FDA-Public Use
  Company Number: US-IPSEN BIOPHARMACEUTICALS, INC.-2013-0107

PATIENT
  Age: 14 Year
  Sex: Male
  Weight: 38 kg

DRUGS (3)
  1. INSULIN DIABETIC PUMP [Concomitant]
     Indication: DIABETES MELLITUS
     Dosage: NOT REPORTED
     Route: 065
  2. INCRELEX [Suspect]
     Active Substance: MECASERMIN
     Dosage: NOT REPORTED
     Route: 058
     Dates: start: 20121209, end: 20121222
  3. INCRELEX [Suspect]
     Active Substance: MECASERMIN
     Indication: PRIMARY INSULIN LIKE GROWTH FACTOR-1 DEFICIENCY
     Route: 058
     Dates: start: 20121223

REACTIONS (8)
  - Injection site pain [Not Recovered/Not Resolved]
  - Injection site swelling [Not Recovered/Not Resolved]
  - Hordeolum [Not Recovered/Not Resolved]
  - Injection site pruritus [Not Recovered/Not Resolved]
  - Headache [None]
  - Lip ulceration [None]
  - Injection site erythema [Not Recovered/Not Resolved]
  - Rash generalised [None]

NARRATIVE: CASE EVENT DATE: 20130114
